FAERS Safety Report 16244552 (Version 3)
Quarter: 2024Q4

REPORT INFORMATION
  Report Type: Spontaneous
  Country: CZ (occurrence: CZ)
  Receive Date: 20190426
  Receipt Date: 20241204
  Transmission Date: 20250115
  Serious: Yes (Other)
  Sender: NOVARTIS
  Company Number: PHHY2019CZ094931

PATIENT
  Age: 56 Year
  Sex: Female

DRUGS (5)
  1. LETROZOLE [Suspect]
     Active Substance: LETROZOLE
     Indication: Breast cancer metastatic
     Dosage: UNK
     Route: 065
     Dates: start: 2018
  2. RIBOCICLIB [Suspect]
     Active Substance: RIBOCICLIB
     Indication: Breast cancer metastatic
     Dosage: UNK
     Route: 065
     Dates: start: 2018
  3. CAPECITABINE [Suspect]
     Active Substance: CAPECITABINE
     Indication: Breast cancer metastatic
     Dosage: 2X PER WEEK
     Route: 065
     Dates: start: 2018, end: 2018
  4. CAPECITABINE [Suspect]
     Active Substance: CAPECITABINE
     Indication: Malignant pleural effusion
     Dosage: UNK UNK, Q2W (ONCE EVERY 2 WEEKS)
     Route: 065
  5. CAPECITABINE [Suspect]
     Active Substance: CAPECITABINE
     Dosage: UNK UNK, BIW (2X PER WEEK)
     Route: 065

REACTIONS (3)
  - Palmar-plantar erythrodysaesthesia syndrome [Unknown]
  - Fatigue [Recovered/Resolved]
  - Nausea [Unknown]
